FAERS Safety Report 7090829-6 (Version None)
Quarter: 2010Q4

REPORT INFORMATION
  Report Type: 
  Country: None (occurrence: None)
  Receive Date: 20101109
  Receipt Date: 20101101
  Transmission Date: 20110411
  Serious: Yes (Death)
  Sender: FDA-Public Use
  Company Number: US-SHIRE-ALL1-2010-04494

PATIENT
  Age: 78 Year
  Sex: Female

DRUGS (2)
  1. FOSRENOL [Suspect]
     Indication: HYPERPHOSPHATAEMIA
     Dosage: 1000 MG, 2X/DAY:BID WITH MEALS
     Route: 048
     Dates: start: 20090101, end: 20100801
  2. SENSIPAR [Concomitant]
     Dosage: UNK MG, UNKNOWN
     Route: 065

REACTIONS (1)
  - DEATH [None]
